FAERS Safety Report 11077924 (Version 3)
Quarter: 2015Q2

REPORT INFORMATION
  Report Type: Report from Study
  Country: CA (occurrence: CA)
  Receive Date: 20150430
  Receipt Date: 20150507
  Transmission Date: 20150821
  Serious: Yes (Life-Threatening, Hospitalization, Other)
  Sender: FDA-Public Use
  Company Number: CA-ROCHE-1540032

PATIENT
  Age: 89 Year
  Sex: Male

DRUGS (15)
  1. PANTOLOC [Concomitant]
     Active Substance: PANTOPRAZOLE SODIUM
  2. DIPHENHYDRAMINE HCL [Concomitant]
     Active Substance: DIPHENHYDRAMINE HYDROCHLORIDE
     Indication: PREMEDICATION
     Route: 048
     Dates: start: 20140312
  3. ACETAMINOPHEN. [Concomitant]
     Active Substance: ACETAMINOPHEN
     Indication: PREMEDICATION
     Route: 048
     Dates: start: 20140312, end: 20140327
  4. THYROXINE [Concomitant]
     Active Substance: LEVOTHYROXINE
  5. CRANBERRY EXTRACT [Concomitant]
     Active Substance: CRANBERRY JUICE
  6. VITAMIN B12 [Concomitant]
     Active Substance: CYANOCOBALAMIN
  7. BISOPROLOL [Concomitant]
     Active Substance: BISOPROLOL
  8. METHYLPREDNISOLONE. [Concomitant]
     Active Substance: METHYLPREDNISOLONE
     Indication: PREMEDICATION
     Route: 042
     Dates: start: 20150216
  9. RITUXAN [Suspect]
     Active Substance: RITUXIMAB
     Indication: RHEUMATOID ARTHRITIS
     Dosage: LAST RUTUXIMAB INFUSION 16/FEB/2015
     Route: 042
     Dates: start: 20140312
  10. ACETAMINOPHEN. [Concomitant]
     Active Substance: ACETAMINOPHEN
     Route: 048
     Dates: start: 20150216
  11. PREDNISONE. [Concomitant]
     Active Substance: PREDNISONE
     Indication: PREMEDICATION
     Route: 048
     Dates: start: 20140312, end: 20140327
  12. TYLENOL [Concomitant]
     Active Substance: ACETAMINOPHEN
     Route: 065
  13. SULFASALAZINE. [Concomitant]
     Active Substance: SULFASALAZINE
  14. ZOPICLONE [Concomitant]
     Active Substance: ZOPICLONE
  15. DENOSUMAB [Concomitant]
     Active Substance: DENOSUMAB

REACTIONS (11)
  - Sepsis [Unknown]
  - Infusion related reaction [Unknown]
  - Infusion related reaction [Unknown]
  - Confusional state [Unknown]
  - Haemorrhagic stroke [Unknown]
  - Retinal haemorrhage [Unknown]
  - Transient ischaemic attack [Unknown]
  - Fall [Unknown]
  - Head injury [Unknown]
  - Dehydration [Unknown]
  - Urinary tract infection [Unknown]

NARRATIVE: CASE EVENT DATE: 201502
